FAERS Safety Report 23378479 (Version 2)
Quarter: 2024Q1

REPORT INFORMATION
  Report Type: Spontaneous
  Country: CA (occurrence: CA)
  Receive Date: 20240108
  Receipt Date: 20240116
  Transmission Date: 20240410
  Serious: Yes (Death, Hospitalization)
  Sender: FDA-Public Use
  Company Number: CA-SANDOZ-SDZ2024CA001279

PATIENT
  Age: 43 Year
  Sex: Male

DRUGS (8)
  1. CYCLOSPORINE [Suspect]
     Active Substance: CYCLOSPORINE
     Indication: Graft versus host disease in gastrointestinal tract
     Dosage: 50.0 MG/KG
     Route: 065
  2. CYCLOPHOSPHAMIDE [Suspect]
     Active Substance: CYCLOPHOSPHAMIDE
     Indication: Product used for unknown indication
     Dosage: 50.0 MG/KG
     Route: 065
  3. RITUXIMAB [Suspect]
     Active Substance: RITUXIMAB
     Indication: Epstein-Barr viraemia
     Dosage: UNK
     Route: 065
  4. BUDESONIDE [Suspect]
     Active Substance: BUDESONIDE
     Indication: Graft versus host disease in gastrointestinal tract
     Dosage: UNK
     Route: 065
  5. FLUDARABINE [Concomitant]
     Active Substance: FLUDARABINE PHOSPHATE
     Indication: Acute myeloid leukaemia
     Dosage: 30.0 MG/M2
     Route: 065
  6. LETERMOVIR [Concomitant]
     Active Substance: LETERMOVIR
     Indication: Antiviral prophylaxis
     Dosage: UNK
     Route: 065
  7. THYMOGLOBULINE [Concomitant]
     Active Substance: LAPINE T-LYMPHOCYTE IMMUNE GLOBULIN
     Indication: Prophylaxis against graft versus host disease
     Dosage: 2.0 MG/KG (POWDER FOR SOLUTION INTRAVENOUS)
     Route: 042
  8. VALGANCICLOVIR [Concomitant]
     Active Substance: VALGANCICLOVIR
     Indication: Cytomegalovirus infection reactivation
     Dosage: UNK
     Route: 065

REACTIONS (2)
  - Encephalitis cytomegalovirus [Fatal]
  - Off label use [Fatal]
